FAERS Safety Report 7487603-5 (Version None)
Quarter: 2011Q2

REPORT INFORMATION
  Report Type: 
  Country: None (occurrence: None)
  Receive Date: 20110518
  Receipt Date: 20101029
  Transmission Date: 20111010
  Serious: No
  Sender: FDA-Public Use
  Company Number: US-AMGEN-USASP2010002355

PATIENT
  Age: 68 Year
  Sex: Female

DRUGS (1)
  1. ENBREL [Suspect]
     Indication: RHEUMATOID ARTHRITIS
     Dosage: 25 MG, UNK
     Dates: start: 20030501, end: 20100905

REACTIONS (6)
  - ORAL PAIN [None]
  - BODY TEMPERATURE INCREASED [None]
  - PERIORBITAL OEDEMA [None]
  - RASH MACULAR [None]
  - RASH PRURITIC [None]
  - RHINALGIA [None]
